FAERS Safety Report 25650114 (Version 1)
Quarter: 2025Q3

REPORT INFORMATION
  Report Type: Spontaneous
  Country: US (occurrence: None)
  Receive Date: 20250806
  Receipt Date: 20250806
  Transmission Date: 20251021
  Serious: No
  Sender: FDA-CTU
  Company Number: None

PATIENT
  Age: 53 Year
  Sex: Male

DRUGS (1)
  1. OTEZLA [Suspect]
     Active Substance: APREMILAST
     Indication: Psoriasis
     Dosage: 30MG TWICE DAILY

REACTIONS (7)
  - Therapy interrupted [None]
  - Treatment delayed [None]
  - Insurance issue [None]
  - Symptom recurrence [None]
  - Nausea [None]
  - Headache [None]
  - Drug dose titration not performed [None]
